FAERS Safety Report 19214598 (Version 1)
Quarter: 2021Q2

REPORT INFORMATION
  Report Type: Spontaneous
  Country: US (occurrence: US)
  Receive Date: 20210505
  Receipt Date: 20210505
  Transmission Date: 20210717
  Serious: Yes (Hospitalization)
  Sender: FDA-Public Use
  Company Number: US-AUROBINDO-AUR-APL-2021-018277

PATIENT
  Age: 12 Year
  Sex: Male

DRUGS (1)
  1. RISPERIDONE. [Suspect]
     Active Substance: RISPERIDONE
     Indication: PSYCHOTIC SYMPTOM
     Dosage: 0.5 MILLIGRAM AT NIGHT
     Route: 065

REACTIONS (1)
  - Catatonia [Recovering/Resolving]
